FAERS Safety Report 11249573 (Version 1)
Quarter: 2015Q3

REPORT INFORMATION
  Report Type: Spontaneous
  Country: US (occurrence: US)
  Receive Date: 20150708
  Receipt Date: 20150708
  Transmission Date: 20151125
  Serious: No
  Sender: FDA-Public Use
  Company Number: US-ELI_LILLY_AND_COMPANY-US201009001505

PATIENT
  Age: 65 Year
  Sex: Male

DRUGS (2)
  1. VITAMIN B12 AND FOLIC ACID [Concomitant]
  2. ALIMTA [Suspect]
     Active Substance: PEMETREXED DISODIUM
     Indication: NON-SMALL CELL LUNG CANCER

REACTIONS (1)
  - Gait disturbance [Unknown]
